FAERS Safety Report 7942233-3 (Version None)
Quarter: 2011Q4

REPORT INFORMATION
  Report Type: 
  Country: None (occurrence: None)
  Receive Date: 20111128
  Receipt Date: 20111118
  Transmission Date: 20120403
  Serious: Yes (Other)
  Sender: FDA-Public Use
  Company Number: DE-NAPPMUNDI-DEU-2011-0008082

PATIENT
  Age: 82 Year
  Sex: Female

DRUGS (1)
  1. BUPRENORPHINE [Suspect]
     Indication: PRODUCT USED FOR UNKNOWN INDICATION
     Dosage: 5 MCG, Q1H
     Dates: start: 20111017, end: 20111025

REACTIONS (2)
  - ATRIAL FLUTTER [None]
  - TACHYCARDIA [None]
